FAERS Safety Report 25385427 (Version 4)
Quarter: 2025Q3

REPORT INFORMATION
  Report Type: Spontaneous
  Country: JP (occurrence: JP)
  Receive Date: 20250602
  Receipt Date: 20250802
  Transmission Date: 20251020
  Serious: Yes (Death)
  Sender: ALEXION PHARMACEUTICALS
  Company Number: JP-ASTRAZENECA-250052461_063010_P_1

PATIENT
  Age: 77 Year
  Sex: Male

DRUGS (2)
  1. DAPAGLIFLOZIN [4]
     Active Substance: DAPAGLIFLOZIN
     Indication: Chronic kidney disease
  2. DAPAGLIFLOZIN PROPANEDIOL [Suspect]
     Active Substance: DAPAGLIFLOZIN PROPANEDIOL
     Indication: Chronic kidney disease

REACTIONS (2)
  - Mesenteric arterial occlusion [Fatal]
  - Gastrointestinal necrosis [Fatal]
